FAERS Safety Report 6195034-3 (Version None)
Quarter: 2009Q2

REPORT INFORMATION
  Report Type: 
  Country: None (occurrence: None)
  Receive Date: 20090519
  Receipt Date: 20090512
  Transmission Date: 20091009
  Serious: Yes (Life-Threatening, Hospitalization, Disabling)
  Sender: FDA-Public Use
  Company Number: B0574530A

PATIENT
  Sex: Female

DRUGS (3)
  1. LAMICTAL [Suspect]
     Indication: BIPOLAR DISORDER
     Dosage: 150MG PER DAY
     Route: 048
     Dates: start: 20080819
  2. VALPROATE SODIUM + VALPROIC ACID [Concomitant]
  3. NEUROTOP [Concomitant]
     Indication: BIPOLAR DISORDER
     Dosage: 600MG PER DAY

REACTIONS (5)
  - ANXIETY [None]
  - DEPRESSION [None]
  - DRUG INEFFECTIVE [None]
  - MANIA [None]
  - TREATMENT FAILURE [None]
